FAERS Safety Report 9292909 (Version 2)
Quarter: 2013Q3

REPORT INFORMATION
  Report Type: Spontaneous
  Country: GB (occurrence: GB)
  Receive Date: 20130516
  Receipt Date: 20130701
  Transmission Date: 20140515
  Serious: Yes (Other)
  Sender: FDA-Public Use
  Company Number: GB-PFIZER INC-2013147768

PATIENT
  Age: 40 Year
  Sex: Male

DRUGS (5)
  1. LYRICA [Suspect]
     Indication: GENERALISED ANXIETY DISORDER
     Dosage: 200 MG, 3X/DAY
     Route: 048
     Dates: start: 201301
  2. DEPAKOTE [Concomitant]
     Dosage: 1 G, 2X/DAY
  3. PROPRANOLOL [Concomitant]
     Dosage: 80 UNK, 3X/DAY
  4. SERTRALINE [Concomitant]
     Dosage: 150 MG, 1X/DAY
  5. LORAZEPAM [Concomitant]
     Dosage: 10 MG, 1X/DAY

REACTIONS (3)
  - Drug abuse [Unknown]
  - Dependence [Recovering/Resolving]
  - Mental disorder [Unknown]
